FAERS Safety Report 5056874-7 (Version None)
Quarter: 2006Q3

REPORT INFORMATION
  Report Type: 
  Country: None (occurrence: None)
  Receive Date: 20060721
  Receipt Date: 20060707
  Transmission Date: 20061208
  Serious: Yes (Other)
  Sender: FDA-Public Use
  Company Number: PHEH2006US08705

PATIENT
  Sex: Female

DRUGS (2)
  1. LAMISIL [Suspect]
     Route: 048
  2. ALEVE (CAPLET) [Suspect]

REACTIONS (1)
  - FACIAL PALSY [None]
